FAERS Safety Report 18164018 (Version 6)
Quarter: 2022Q1

REPORT INFORMATION
  Report Type: Spontaneous
  Country: US (occurrence: US)
  Receive Date: 20200818
  Receipt Date: 20220228
  Transmission Date: 20220423
  Serious: Yes (Other)
  Sender: FDA-Public Use
  Company Number: US-BIOCODEX2-202000797

PATIENT

DRUGS (14)
  1. DIACOMIT [Suspect]
     Active Substance: STIRIPENTOL
     Indication: Severe myoclonic epilepsy of infancy
     Dosage: 250MG TWICE A DAY
     Route: 048
     Dates: start: 20200522
  2. DIACOMIT [Suspect]
     Active Substance: STIRIPENTOL
     Dosage: 250MG TWICE A DAY
     Route: 048
     Dates: start: 20200513
  3. DIACOMIT [Suspect]
     Active Substance: STIRIPENTOL
     Dosage: 250MG, 4 TIMES A DAY.
     Route: 065
  4. DIACOMIT [Suspect]
     Active Substance: STIRIPENTOL
     Dosage: 500MG TWICE A DAY.
     Route: 065
  5. ONFI [Suspect]
     Active Substance: CLOBAZAM
     Indication: Severe myoclonic epilepsy of infancy
     Dosage: 1.5ML TWICE A DAY.
     Route: 048
     Dates: start: 20201201
  6. ONFI [Suspect]
     Active Substance: CLOBAZAM
     Dosage: 1.5ML TWICE A DAY IN TOTAL.
     Route: 065
     Dates: start: 202101
  7. ONFI [Suspect]
     Active Substance: CLOBAZAM
     Dosage: 2.25ML TWICE A DAY.
     Route: 065
  8. CLOBAZAM [Suspect]
     Active Substance: CLOBAZAM
     Indication: Severe myoclonic epilepsy of infancy
     Route: 065
  9. CLONAZEPAM [Concomitant]
     Active Substance: CLONAZEPAM
     Indication: Severe myoclonic epilepsy of infancy
     Dosage: 0.125MG THREE TIMES A DAY.
     Route: 048
     Dates: start: 2017
  10. DIASTAT [Concomitant]
     Active Substance: DIAZEPAM
     Indication: Product used for unknown indication
     Route: 065
  11. EPIDIOLEX [Concomitant]
     Active Substance: CANNABIDIOL
     Indication: Severe myoclonic epilepsy of infancy
     Dosage: 1ML TWICE A DAY.
     Route: 048
     Dates: start: 201812
  12. KEPPRA [Concomitant]
     Active Substance: LEVETIRACETAM
     Indication: Severe myoclonic epilepsy of infancy
     Dosage: 8ML TWICE A DAY.
     Route: 048
     Dates: start: 201608
  13. ZONEGRAN [Concomitant]
     Active Substance: ZONISAMIDE
     Indication: Severe myoclonic epilepsy of infancy
     Dosage: 100 MG, QD
     Route: 048
     Dates: start: 201904
  14. VITAMINS NOS [Concomitant]
     Active Substance: VITAMINS
     Indication: Product used for unknown indication
     Route: 065

REACTIONS (5)
  - Seizure [Unknown]
  - Limb discomfort [Recovered/Resolved]
  - Sinusitis [Unknown]
  - Fatigue [Recovered/Resolved]
  - Product use in unapproved indication [Recovered/Resolved]

NARRATIVE: CASE EVENT DATE: 20201201
